FAERS Safety Report 6714075-8 (Version None)
Quarter: 2010Q2

REPORT INFORMATION
  Report Type: 
  Country: None (occurrence: None)
  Receive Date: 20100506
  Receipt Date: 20100429
  Transmission Date: 20101027
  Serious: Yes (Other)
  Sender: FDA-Public Use
  Company Number: CN-BAYER-201023957GPV

PATIENT
  Age: 5 Year
  Sex: Male

DRUGS (9)
  1. FLUDARABINE PHOSPHATE [Suspect]
     Indication: BONE MARROW CONDITIONING REGIMEN
     Dosage: FROM DAY -10 TO DAY -7
  2. BUSULPHAN [Suspect]
     Indication: BONE MARROW CONDITIONING REGIMEN
     Dosage: FROM DAY -10 TO DAY -9
  3. CYCLOPHOSPHAMIDE [Suspect]
     Indication: BONE MARROW CONDITIONING REGIMEN
     Dosage: FROM DAY -6 TO DAY -3
  4. ATG (RABBIT) [Suspect]
     Indication: BONE MARROW CONDITIONING REGIMEN
     Dosage: FROM DAY -4 TO DAY -1
  5. CYCLOSPORINE [Concomitant]
     Indication: PROPHYLAXIS AGAINST GRAFT VERSUS HOST DISEASE
  6. CYCLOSPORINE [Concomitant]
     Dates: start: 20071001
  7. METHOTREXATE [Concomitant]
     Indication: PROPHYLAXIS AGAINST GRAFT VERSUS HOST DISEASE
  8. MYCOPHEMOLATE MOFEIL [Concomitant]
     Indication: PROPHYLAXIS AGAINST GRAFT VERSUS HOST DISEASE
  9. BASILIXIMAB [Concomitant]
     Indication: PROPHYLAXIS AGAINST GRAFT VERSUS HOST DISEASE
     Dosage: ON DAY 1 AND 4

REACTIONS (3)
  - ACUTE GRAFT VERSUS HOST DISEASE IN SKIN [None]
  - CHRONIC GRAFT VERSUS HOST DISEASE [None]
  - FEBRILE NEUTROPENIA [None]
